FAERS Safety Report 5317243-5 (Version None)
Quarter: 2007Q2

REPORT INFORMATION
  Report Type: 
  Country: None (occurrence: None)
  Receive Date: 20070504
  Receipt Date: 20070306
  Transmission Date: 20071010
  Serious: Yes (Hospitalization)
  Sender: FDA-Public Use
  Company Number: AU-BOEHRINGER INGELHEIM PHARMACEUTICALS, INC.-2007-BP-03137AU

PATIENT
  Age: 75 Year
  Sex: Female

DRUGS (1)
  1. MICARDIS HCT [Suspect]
     Route: 048

REACTIONS (2)
  - BLOOD SODIUM INCREASED [None]
  - DEHYDRATION [None]
